FAERS Safety Report 8000470-6 (Version None)
Quarter: 2011Q4

REPORT INFORMATION
  Report Type: 
  Country: None (occurrence: None)
  Receive Date: 20111222
  Receipt Date: 20111214
  Transmission Date: 20120403
  Serious: Yes (Hospitalization)
  Sender: FDA-Public Use
  Company Number: FR-JNJFOC-20111208357

PATIENT
  Sex: Male

DRUGS (9)
  1. PREZISTA [Suspect]
     Indication: HIV INFECTION
     Route: 048
     Dates: start: 20090901
  2. NORVIR [Suspect]
     Indication: HIV INFECTION
     Route: 048
     Dates: start: 20051003
  3. ISENTRESS [Suspect]
     Indication: HIV INFECTION
     Route: 048
     Dates: start: 20100812
  4. PERINDOPRIL [Suspect]
     Indication: HYPERTENSION
     Route: 048
     Dates: end: 20110720
  5. MARAVIROC [Suspect]
     Indication: HIV INFECTION
     Route: 048
     Dates: start: 20110510
  6. FLUOXETINE [Concomitant]
     Route: 048
  7. BECLOMETHASONE DIPROPIONATE [Concomitant]
     Route: 055
  8. LANSOPRAZOLE [Concomitant]
     Route: 048
  9. UVEDOSE [Concomitant]

REACTIONS (1)
  - ISCHAEMIC STROKE [None]
